FAERS Safety Report 10646712 (Version 4)
Quarter: 2015Q2

REPORT INFORMATION
  Report Type: Spontaneous
  Country: US (occurrence: US)
  Receive Date: 20141211
  Receipt Date: 20150505
  Transmission Date: 20150821
  Serious: Yes (Hospitalization, Other)
  Sender: FDA-Public Use
  Company Number: US-PFIZER INC-2014339120

PATIENT
  Age: 89 Year
  Sex: Female

DRUGS (20)
  1. ESCITALOPRAM [Concomitant]
     Active Substance: ESCITALOPRAM OXALATE
     Dosage: 10 MG, 1X/DAY (QD)
     Dates: start: 2009, end: 20150314
  2. ALBUTEROL. [Concomitant]
     Active Substance: ALBUTEROL
     Dosage: UNK, PRN (2.5 MG /3 ML, 3-4 TIMES /DAY)
     Route: 055
     Dates: start: 2007
  3. NORPACE [Suspect]
     Active Substance: DISOPYRAMIDE PHOSPHATE
     Dosage: 100 MG, 2X/DAY
     Route: 048
     Dates: start: 201412
  4. BUDESONIDE. [Concomitant]
     Active Substance: BUDESONIDE
     Dosage: (0.5 MG/2ML), 2X/DAY
     Route: 055
     Dates: start: 2007
  5. AMLODIPINE [Concomitant]
     Active Substance: AMLODIPINE BESYLATE
     Dosage: 2.5 MG, 1X/DAY
     Dates: start: 2000
  6. ATENOLOL. [Concomitant]
     Active Substance: ATENOLOL
     Dosage: 25 MG, 2X/DAY
     Dates: start: 1980
  7. CHOLESTYRAMINE. [Concomitant]
     Active Substance: CHOLESTYRAMINE
     Dosage: 4 G, 1X/DAY (PM)
     Dates: start: 2005
  8. VITAMIN D [Concomitant]
     Active Substance: CHOLECALCIFEROL
     Dosage: 2000 IU, 1X/DAY (QD)
     Dates: start: 2010, end: 20141201
  9. LASIX [Concomitant]
     Active Substance: FUROSEMIDE
     Dosage: 20 MG, AS NEEDED (QD PRN)
     Dates: start: 2009, end: 20141201
  10. DICLOFENAC [Concomitant]
     Active Substance: DICLOFENAC
     Dosage: 2 G, 3X/DAY ( 1%)
     Route: 061
     Dates: start: 2012, end: 20141201
  11. MONTELUKAST [Concomitant]
     Active Substance: MONTELUKAST SODIUM
     Dosage: 10 MG, 1X/DAY (QHS)
     Dates: start: 2007
  12. BROVANA [Concomitant]
     Active Substance: ARFORMOTEROL TARTRATE
     Dosage: (15 MCG/2 ML), 2X/DAY
     Route: 055
     Dates: start: 2007
  13. LOPERAMIDE [Concomitant]
     Active Substance: LOPERAMIDE
     Dosage: 2 MG, 1X/DAY (QD)
     Dates: start: 2005, end: 20141201
  14. TYLENOL [Concomitant]
     Active Substance: ACETAMINOPHEN
     Dosage: UNK, 1X/DAY ( PM QHS)
     Dates: start: 2012, end: 20141201
  15. PRESERVISION EYE VITS [Concomitant]
     Dosage: UNK, 2X/DAY
     Dates: start: 2014, end: 20141201
  16. NORPACE [Suspect]
     Active Substance: DISOPYRAMIDE PHOSPHATE
     Indication: ARRHYTHMIA
     Dosage: 150 MG, 2X/DAY
     Route: 048
     Dates: start: 1980
  17. TRAZODONE [Concomitant]
     Active Substance: TRAZODONE HYDROCHLORIDE
     Dosage: 25 MG, 1X/DAY (QHS)
     Dates: start: 2009
  18. SYSTANE (HYPROMELLOSE 2910 (4000 MPA.S)) [Concomitant]
     Active Substance: HYPROMELLOSE 2910 (4000 MPA.S)
     Dosage: UNK, 2X/DAY (OU)
     Dates: start: 2013, end: 20141211
  19. LANSOPRAZOLE. [Concomitant]
     Active Substance: LANSOPRAZOLE
     Dosage: 30 MG, 1X/DAY (QD)
     Dates: start: 2005
  20. LEXAPRO [Concomitant]
     Active Substance: ESCITALOPRAM OXALATE
     Dosage: 10 MG, DAILY

REACTIONS (2)
  - Urinary tract infection [Unknown]
  - Cerebrovascular accident [Recovering/Resolving]

NARRATIVE: CASE EVENT DATE: 20141130
